FAERS Safety Report 11350566 (Version 1)
Quarter: 2015Q3

REPORT INFORMATION
  Report Type: Spontaneous
  Country: GB (occurrence: GB)
  Receive Date: 20150807
  Receipt Date: 20150807
  Transmission Date: 20151125
  Serious: Yes (Hospitalization)
  Sender: FDA-Public Use
  Company Number: GB-TEVA-582931ACC

PATIENT
  Sex: Female
  Weight: 57.15 kg

DRUGS (1)
  1. TRIMETHOPRIM. [Suspect]
     Active Substance: TRIMETHOPRIM
     Indication: URINARY TRACT INFECTION
     Route: 048

REACTIONS (10)
  - Syncope [Unknown]
  - Vision blurred [Unknown]
  - Vomiting [Unknown]
  - Palpitations [Unknown]
  - Meningitis [Unknown]
  - Pain in extremity [Unknown]
  - Dyspnoea [Unknown]
  - Malaise [Unknown]
  - Hypersensitivity [Unknown]
  - Dizziness [Unknown]
